FAERS Safety Report 7026583-3 (Version None)
Quarter: 2010Q3

REPORT INFORMATION
  Report Type: 
  Country: None (occurrence: None)
  Receive Date: 20100930
  Receipt Date: 20100922
  Transmission Date: 20110219
  Serious: Yes (Hospitalization)
  Sender: FDA-Public Use
  Company Number: 2010SP028779

PATIENT
  Age: 57 Year
  Sex: Female

DRUGS (6)
  1. BOCEPREVIR [Suspect]
     Indication: HEPATITIS C
     Dosage: 800 MCG; TID; PO
     Route: 048
     Dates: start: 20100430, end: 20100522
  2. BOCEPREVIR [Suspect]
     Indication: HEPATITIS C
     Dosage: 800 MCG; TID; PO
     Route: 048
     Dates: start: 20100523
  3. PEG-INTRON [Suspect]
     Indication: HEPATITIS C
     Dosage: 80 MCG; QW;SC
     Route: 058
     Dates: start: 20100401
  4. RIBAVIRIN [Suspect]
     Indication: HEPATITIS C
     Dosage: 600 MG;QD;PO, 400 MG;QD;PO
     Route: 048
     Dates: start: 20100401, end: 20100522
  5. RIBAVIRIN [Suspect]
     Indication: HEPATITIS C
     Dosage: 600 MG;QD;PO, 400 MG;QD;PO
     Route: 048
     Dates: start: 20100518
  6. RIBAVIRIN [Suspect]
     Indication: HEPATITIS C
     Dosage: 600 MG;QD;PO, 400 MG;QD;PO
     Route: 048
     Dates: start: 20100523

REACTIONS (5)
  - BLOOD POTASSIUM DECREASED [None]
  - BLOOD SODIUM DECREASED [None]
  - HYPONATRAEMIA [None]
  - TACHYCARDIA [None]
  - UPPER RESPIRATORY TRACT INFECTION [None]
